FAERS Safety Report 8823277 (Version 4)
Quarter: 2013Q4

REPORT INFORMATION
  Report Type: Spontaneous
  Country: JP (occurrence: JP)
  Receive Date: 20121003
  Receipt Date: 20131217
  Transmission Date: 20140711
  Serious: Yes (Death, Disabling, Other)
  Sender: FDA-Public Use
  Company Number: JP-GLAXOSMITHKLINE-B0834934A

PATIENT
  Age: 60 Year
  Sex: Female
  Weight: 42 kg

DRUGS (2)
  1. HYCAMTIN [Suspect]
     Indication: OVARIAN CANCER RECURRENT
     Dosage: 1MGM2 PER DAY
     Route: 042
     Dates: start: 20111025, end: 20111124
  2. CEFCAPENE PIVOXIL HYDROCHLORIDE [Concomitant]
     Route: 048
     Dates: start: 20111205, end: 20121224

REACTIONS (12)
  - White blood cell count decreased [Fatal]
  - Neutrophil count decreased [Fatal]
  - Red blood cell count decreased [Recovering/Resolving]
  - Anaemia [Recovering/Resolving]
  - Platelet count decreased [Recovering/Resolving]
  - Blood urea [Recovered/Resolved]
  - Blood creatinine [Recovering/Resolving]
  - Pyrexia [Recovering/Resolving]
  - Infection [Recovered/Resolved]
  - Cough [Unknown]
  - Dyspnoea [Unknown]
  - Pleural effusion [Unknown]
